FAERS Safety Report 8083758-2 (Version None)
Quarter: 2012Q1

REPORT INFORMATION
  Report Type: 
  Country: None (occurrence: None)
  Receive Date: 20120128
  Receipt Date: 20110124
  Transmission Date: 20120608
  Serious: No
  Sender: FDA-Public Use
  Company Number: US-ABBOTT-11P-163-0700194-01

PATIENT
  Age: 44 Year
  Sex: Male

DRUGS (22)
  1. HYDROMORPHONE HCL [Concomitant]
     Indication: PAIN
  2. FOLIC ACID [Concomitant]
     Indication: PRODUCT USED FOR UNKNOWN INDICATION
     Dosage: 1 MG DAILY
  3. HUMIRA [Suspect]
     Indication: RHEUMATOID ARTHRITIS
     Dates: start: 20100801
  4. HUMIRA [Suspect]
     Dates: start: 20110114
  5. METOPROLOL TARTRATE [Concomitant]
     Indication: PRODUCT USED FOR UNKNOWN INDICATION
  6. AMITRIPTYLINE HCL [Concomitant]
     Indication: PAIN
     Dosage: 25 MG DAILY
  7. PLAVIX [Concomitant]
     Indication: CARDIAC DISORDER
     Dosage: 75 MG DAILY
  8. METHADONE HCL [Concomitant]
     Indication: PAIN
  9. ASPIRIN [Concomitant]
     Indication: CARDIAC DISORDER
     Dosage: 81 MG DAILY
  10. OMEPRAZOLE [Concomitant]
     Indication: GASTROOESOPHAGEAL REFLUX DISEASE
     Dosage: 20MG/1100 MG DAILY
  11. POTASSIUM [Concomitant]
     Indication: PRODUCT USED FOR UNKNOWN INDICATION
     Dosage: 25 MEQ DAILY
  12. LASIX [Concomitant]
     Indication: PRODUCT USED FOR UNKNOWN INDICATION
     Dosage: 40 MG DAILY
  13. PRASTERONE [Concomitant]
     Indication: PRODUCT USED FOR UNKNOWN INDICATION
  14. SPIRONOLACTONE [Concomitant]
     Indication: PRODUCT USED FOR UNKNOWN INDICATION
  15. COZAAR [Concomitant]
     Indication: CARDIAC DISORDER
     Dosage: 50 MG DAILY
  16. SOMA COMPOUND [Concomitant]
     Indication: MUSCLE RELAXANT THERAPY
     Dosage: 50 MG 3X/DAY AS NEEDED
  17. SIMVASTATIN [Concomitant]
     Indication: PRODUCT USED FOR UNKNOWN INDICATION
     Dosage: 40 MG DAILY
  18. SULFASALAZINE [Concomitant]
     Indication: PRODUCT USED FOR UNKNOWN INDICATION
  19. ALBUTEROL [Concomitant]
     Indication: PRODUCT USED FOR UNKNOWN INDICATION
     Route: 055
  20. NITROGLYCERIN [Concomitant]
     Indication: CHEST PAIN
  21. ALLOPURINOL [Concomitant]
     Indication: GOUT
  22. NEURONTIN [Concomitant]
     Indication: LYMPHOEDEMA

REACTIONS (3)
  - RETCHING [None]
  - ARTHRALGIA [None]
  - NAUSEA [None]
